FAERS Safety Report 9291027 (Version 2)
Quarter: 2013Q2

REPORT INFORMATION
  Report Type: Spontaneous
  Country: IT (occurrence: IT)
  Receive Date: 20130515
  Receipt Date: 20130517
  Transmission Date: 20140414
  Serious: Yes (Hospitalization)
  Sender: FDA-Public Use
  Company Number: IT-PFIZER INC-2013147494

PATIENT
  Age: 84 Year
  Sex: Female

DRUGS (6)
  1. ZOLOFT [Suspect]
     Indication: AGITATION
     Dosage: 50 MG, 1X/DAY
     Route: 048
     Dates: start: 20130414, end: 20130424
  2. TRITTICO [Suspect]
     Indication: AGITATION
     Dosage: 120 GTT (30-60-30 GTT), 1X/DAY
     Route: 048
     Dates: start: 19900101, end: 20130424
  3. BISOPROLOL FUMARATE [Concomitant]
     Dosage: UNK
  4. METFORAL [Concomitant]
     Dosage: 500 MG, UNK
     Route: 048
  5. FOSAVANCE [Concomitant]
     Dosage: UNK
  6. UNIPRIL [Concomitant]
     Dosage: UNK
     Route: 048

REACTIONS (4)
  - Blood creatine phosphokinase increased [Recovered/Resolved]
  - Chest pain [Recovered/Resolved]
  - Dyskinesia [Recovered/Resolved]
  - Myoclonus [Recovered/Resolved]
